FAERS Safety Report 10188717 (Version 1)
Quarter: 2014Q2

REPORT INFORMATION
  Report Type: Spontaneous
  Country: US (occurrence: None)
  Receive Date: 20140521
  Receipt Date: 20140521
  Transmission Date: 20141212
  Serious: Yes (Hospitalization)
  Sender: FDA-Public Use
  Company Number: None

PATIENT
  Age: 44 Year
  Sex: Male
  Weight: 116.8 kg

DRUGS (2)
  1. MIDAZOLAM [Suspect]
     Indication: SEDATION
     Route: 042
     Dates: start: 20130712, end: 20130712
  2. FENTANYL [Suspect]
     Indication: SEDATION
     Dosage: 50 MCG ONCE IV
     Route: 042
     Dates: start: 20130712, end: 20130712

REACTIONS (1)
  - Convulsion [None]
